FAERS Safety Report 5392707-7 (Version None)
Quarter: 2007Q3

REPORT INFORMATION
  Report Type: 
  Country: None (occurrence: None)
  Receive Date: 20070720
  Receipt Date: 20070706
  Transmission Date: 20080115
  Serious: Yes (Hospitalization)
  Sender: FDA-Public Use
  Company Number: JP-PFIZER INC-2007057018

PATIENT
  Sex: Male

DRUGS (1)
  1. MIGLITOL TABLET [Suspect]
     Route: 048

REACTIONS (1)
  - INTESTINAL OBSTRUCTION [None]
